FAERS Safety Report 4322333-X (Version None)
Quarter: 2004Q1

REPORT INFORMATION
  Report Type: 
  Country: None (occurrence: None)
  Receive Date: 20040319
  Receipt Date: 20040310
  Transmission Date: 20041129
  Serious: Yes (Life-Threatening)
  Sender: FDA-Public Use
  Company Number: A06200400075

PATIENT

DRUGS (1)
  1. FASTURTEC - (RASBURICASE) - SOLUTION - UNIT DOSE : UNKNOWN [Suspect]
     Indication: HYPERURICAEMIA
     Route: 042

REACTIONS (2)
  - HYPOTENSION [None]
  - INFUSION RELATED REACTION [None]
